FAERS Safety Report 10236249 (Version 1)
Quarter: 2014Q2

REPORT INFORMATION
  Report Type: Spontaneous
  Country: US (occurrence: US)
  Receive Date: 20140613
  Receipt Date: 20140613
  Transmission Date: 20141212
  Serious: No
  Sender: FDA-Public Use
  Company Number: US-009507513-1405USA004862

PATIENT
  Age: 4 Year
  Sex: Male
  Weight: 15.87 kg

DRUGS (2)
  1. CLARITIN CHEWABLE TABLETS [Suspect]
     Indication: HYPERSENSITIVITY
     Dosage: UNK, UNKNOWN
     Route: 048
  2. CLARITIN CHEWABLE TABLETS [Suspect]
     Dosage: UNK
     Route: 048
     Dates: start: 20140428

REACTIONS (1)
  - Overdose [Unknown]
